FAERS Safety Report 9330547 (Version 1)
Quarter: 2013Q2

REPORT INFORMATION
  Report Type: Spontaneous
  Country: JP (occurrence: JP)
  Receive Date: 20130605
  Receipt Date: 20130605
  Transmission Date: 20140414
  Serious: Yes (Hospitalization)
  Sender: FDA-Public Use
  Company Number: PHHY2013JP012496

PATIENT
  Age: 83 Year
  Sex: Male

DRUGS (12)
  1. RIVASTIGMIN [Suspect]
     Indication: DEMENTIA ALZHEIMER^S TYPE
     Dosage: 4.5 MG ONCE A DAY
     Route: 062
     Dates: start: 20120315, end: 201204
  2. RIVASTIGMIN [Suspect]
     Dosage: 9 MG, ONCE A DAY
     Route: 062
     Dates: start: 201204, end: 201205
  3. RIVASTIGMIN [Suspect]
     Dosage: 13.5 MG, ONCE A DAY
     Route: 062
     Dates: start: 201205, end: 201206
  4. RIVASTIGMIN [Suspect]
     Dosage: 18 MG, ONCE A DAY
     Route: 062
     Dates: start: 201206
  5. RIVASTIGMIN [Suspect]
     Dosage: 13.5 MG, ONCE A DAY
     Route: 062
     Dates: end: 201302
  6. LEFTOSE [Concomitant]
  7. MUCOSOLVAN [Concomitant]
  8. MAGMITT [Concomitant]
  9. LENDORMIN [Concomitant]
  10. ROZEREM [Concomitant]
  11. MEMARY [Concomitant]
  12. URITOS [Concomitant]

REACTIONS (2)
  - Aspiration [Unknown]
  - Blood cholinesterase decreased [Recovered/Resolved]
